FAERS Safety Report 7261389-1 (Version None)
Quarter: 2011Q1

REPORT INFORMATION
  Report Type: 
  Country: None (occurrence: None)
  Receive Date: 20110130
  Receipt Date: 20101021
  Transmission Date: 20110831
  Serious: No
  Sender: FDA-Public Use
  Company Number: US-ABBOTT-10P-163-0680223-00

PATIENT
  Age: 41 Year
  Sex: Male

DRUGS (2)
  1. HUMIRA [Suspect]
     Dosage: REPEAT OF LOADING DOSE
  2. HUMIRA [Suspect]
     Indication: COLITIS ULCERATIVE
     Dosage: 80 MG REPEAT OF LOADING DOSE
     Dates: start: 20091001

REACTIONS (8)
  - COLITIS ULCERATIVE [None]
  - FEELING ABNORMAL [None]
  - PRURITUS [None]
  - COUGH [None]
  - INCORRECT STORAGE OF DRUG [None]
  - URTICARIA [None]
  - LOWER RESPIRATORY TRACT INFECTION [None]
  - RASH [None]
